FAERS Safety Report 19179096 (Version 2)
Quarter: 2021Q4

REPORT INFORMATION
  Report Type: Report from Study
  Country: CO (occurrence: CO)
  Receive Date: 20210426
  Receipt Date: 20211103
  Transmission Date: 20220303
  Serious: Yes (Hospitalization, Other)
  Sender: FDA-Public Use
  Company Number: CO-ABBVIE-21K-036-3876524-00

PATIENT
  Sex: Male
  Weight: 50 kg

DRUGS (2)
  1. ZEMPLAR [Suspect]
     Active Substance: PARICALCITOL
     Indication: Hyperparathyroidism secondary
     Route: 042
     Dates: start: 20191030, end: 20210414
  2. ZEMPLAR [Suspect]
     Active Substance: PARICALCITOL
     Indication: Chronic kidney disease

REACTIONS (6)
  - Thyroid disorder [Recovering/Resolving]
  - Blood parathyroid hormone abnormal [Recovering/Resolving]
  - Blood calcium decreased [Recovering/Resolving]
  - Phosphorus metabolism disorder [Recovering/Resolving]
  - Lymphadenopathy [Recovering/Resolving]
  - Bone disorder [Recovering/Resolving]

NARRATIVE: CASE EVENT DATE: 20200101
